FAERS Safety Report 6092354-8 (Version None)
Quarter: 2009Q1

REPORT INFORMATION
  Report Type: 
  Country: None (occurrence: None)
  Receive Date: 20090223
  Receipt Date: 20090223
  Transmission Date: 20090719
  Serious: Yes (Death)
  Sender: FDA-Public Use
  Company Number: None

PATIENT
  Sex: Female

DRUGS (16)
  1. LETAIRIS [Suspect]
     Indication: HYPERTENSION
     Dosage: 5MG DAILY ORALLY
     Route: 048
     Dates: start: 20070801, end: 20080401
  2. LETAIRIS [Suspect]
     Indication: HYPERTENSION
     Dosage: 5MG DAILY ORALLY
     Route: 048
     Dates: start: 20081201, end: 20090101
  3. LETAIRIS [Suspect]
     Indication: HYPERTENSION
     Dosage: 10MG DAILY ORALLY
     Route: 048
     Dates: start: 20080401, end: 20081201
  4. REVALTIO [Concomitant]
  5. FOSAMAX PLUS D [Concomitant]
  6. FUROSEMIDE [Concomitant]
  7. QVAR INHALER [Concomitant]
  8. WARFARIN SODIUM [Concomitant]
  9. SPIRONOLACTONE [Concomitant]
  10. TYLENOL W/ CODEINE NO. 3 [Concomitant]
  11. OMEPRAZOLE [Concomitant]
  12. ALLEGRA [Concomitant]
  13. AMBIEN [Concomitant]
  14. CALCIUM [Concomitant]
  15. BIOTIN [Concomitant]
  16. M.V.I. [Concomitant]

REACTIONS (5)
  - HEPATIC CONGESTION [None]
  - INTERSTITIAL LUNG DISEASE [None]
  - NO THERAPEUTIC RESPONSE [None]
  - RASH PRURITIC [None]
  - RIGHT VENTRICULAR FAILURE [None]
